FAERS Safety Report 8585660 (Version 10)
Quarter: 2015Q3

REPORT INFORMATION
  Report Type: Spontaneous
  Country: US (occurrence: US)
  Receive Date: 20120530
  Receipt Date: 20150918
  Transmission Date: 20151125
  Serious: Yes (Hospitalization, Other)
  Sender: FDA-Public Use
  Company Number: US-GLAXOSMITHKLINE-A0963836A

PATIENT
  Age: 38 Year
  Sex: Female

DRUGS (16)
  1. FLOLAN [Suspect]
     Active Substance: EPOPROSTENOL SODIUM
     Dosage: UNK
     Dates: start: 20101207
  2. FLOLAN [Suspect]
     Active Substance: EPOPROSTENOL SODIUM
     Indication: PULMONARY HYPERTENSION
     Dosage: UNK
     Dates: start: 20101207
  3. FLOLAN [Suspect]
     Active Substance: EPOPROSTENOL SODIUM
     Dosage: UNK
     Dates: start: 20101207
  4. FLOLAN [Suspect]
     Active Substance: EPOPROSTENOL SODIUM
     Dosage: UNK
     Dates: start: 20101222
  5. FLOLAN [Suspect]
     Active Substance: EPOPROSTENOL SODIUM
     Dosage: UNK
  6. FLOLAN [Suspect]
     Active Substance: EPOPROSTENOL SODIUM
     Dosage: 22 NG/KG/MIN, CO
     Route: 042
  7. FLOLAN [Suspect]
     Active Substance: EPOPROSTENOL SODIUM
     Indication: COR PULMONALE CHRONIC
     Dosage: CONTINUOUS.22 NG/KG/MIN, CONCENTRATION: 30,000 NG/ML, UNKNOWN PUMP RATE, VIAL STRENGTH: 1.5 MG.[...]
     Route: 042
     Dates: start: 20101207
  8. REVATIO [Concomitant]
     Active Substance: SILDENAFIL CITRATE
  9. FLOLAN [Suspect]
     Active Substance: EPOPROSTENOL SODIUM
     Dosage: 22 NG/KG/MIN CONTINUOUSLY; CONCENTRATION: 30,000 NG/ML; PUMP RATE: 80 ML/DAY; VIAL STRENGTH: 1.5 MG
     Route: 042
     Dates: start: 20101222
  10. FLOLAN [Suspect]
     Active Substance: EPOPROSTENOL SODIUM
     Indication: CONNECTIVE TISSUE DISORDER
     Dosage: UNK
     Dates: start: 20101207
  11. FLOLAN [Suspect]
     Active Substance: EPOPROSTENOL SODIUM
     Dosage: UNK
     Dates: start: 20101207
  12. WARFARIN [Concomitant]
     Active Substance: WARFARIN
  13. FLOLAN [Suspect]
     Active Substance: EPOPROSTENOL SODIUM
     Dosage: UNK
     Dates: start: 20101207
  14. LETAIRIS [Concomitant]
     Active Substance: AMBRISENTAN
  15. FLOLAN [Suspect]
     Active Substance: EPOPROSTENOL SODIUM
     Dosage: UNK
  16. FLOLAN [Suspect]
     Active Substance: EPOPROSTENOL SODIUM
     Dosage: 22NG/KG/MIN CONTINUOUS
     Route: 042

REACTIONS (24)
  - Sepsis [Unknown]
  - Aspiration pleural cavity [Unknown]
  - Diarrhoea [Unknown]
  - Erythema [Unknown]
  - Vomiting [Unknown]
  - Sinusitis [Unknown]
  - Peripheral swelling [Unknown]
  - Drug dose omission [Unknown]
  - Dyspnoea [Unknown]
  - Hyperaesthesia [Unknown]
  - Upper respiratory tract infection [Unknown]
  - Lung disorder [Unknown]
  - Catheter site pain [Unknown]
  - Staphylococcal infection [Unknown]
  - Device related infection [Unknown]
  - Retching [Unknown]
  - Catheter site erythema [Unknown]
  - Central venous catheter removal [Unknown]
  - Pulmonary oedema [Unknown]
  - Blood culture positive [Unknown]
  - Nausea [Unknown]
  - Chest discomfort [Unknown]
  - Catheter site swelling [Unknown]
  - Medical device complication [Recovered/Resolved]

NARRATIVE: CASE EVENT DATE: 20140924
